FAERS Safety Report 7481825-5 (Version None)
Quarter: 2011Q2

REPORT INFORMATION
  Report Type: 
  Country: None (occurrence: None)
  Receive Date: 20110516
  Receipt Date: 20110501
  Transmission Date: 20111010
  Serious: Yes (Other)
  Sender: FDA-Public Use
  Company Number: US-JNJFOC-20110501571

PATIENT
  Sex: Male
  Weight: 91.63 kg

DRUGS (2)
  1. ROGAINE [Suspect]
     Route: 061
  2. ROGAINE [Suspect]
     Indication: ALOPECIA
     Dosage: ONE TO TWO TIMES DAILY
     Route: 061
     Dates: start: 20110201, end: 20110401

REACTIONS (5)
  - SKIN EXFOLIATION [None]
  - SKIN IRRITATION [None]
  - DANDRUFF [None]
  - APPLICATION SITE BURN [None]
  - APPLICATION SITE PRURITUS [None]
